FAERS Safety Report 23442579 (Version 1)
Quarter: 2024Q1

REPORT INFORMATION
  Report Type: Spontaneous
  Country: US (occurrence: US)
  Receive Date: 20240125
  Receipt Date: 20240125
  Transmission Date: 20240410
  Serious: Yes (Disabling, Other)
  Sender: FDA-Public Use
  Company Number: US-SANOFI-01912516

PATIENT
  Sex: Male

DRUGS (1)
  1. LANTUS SOLOSTAR [Suspect]
     Active Substance: INSULIN GLARGINE
     Indication: Type 2 diabetes mellitus
     Dosage: BID 60 UNITS IN THE MORNING AND 50 UNITS IN THE EVENING
     Route: 065

REACTIONS (3)
  - Disability [Unknown]
  - Visual impairment [Unknown]
  - Inappropriate schedule of product administration [Unknown]
